FAERS Safety Report 17334457 (Version 3)
Quarter: 2020Q1

REPORT INFORMATION
  Report Type: Report from Study
  Country: US (occurrence: US)
  Receive Date: 20200128
  Receipt Date: 20200311
  Transmission Date: 20200409
  Serious: Yes (Hospitalization, Other)
  Sender: FDA-Public Use
  Company Number: NVSC2020US013798

PATIENT
  Age: 34 Year
  Sex: Female
  Weight: 64.4 kg

DRUGS (3)
  1. PIQRAY [Suspect]
     Active Substance: ALPELISIB
     Indication: VASCULAR MALFORMATION
     Dosage: 250 MG (200 MG AND 50 MG)
     Route: 048
     Dates: start: 20190511
  2. PIQRAY [Suspect]
     Active Substance: ALPELISIB
     Dosage: 200 MG
     Route: 048
     Dates: start: 20200214
  3. PIQRAY [Suspect]
     Active Substance: ALPELISIB
     Dosage: 250 MG (200 MG AND 50 MG)
     Route: 048
     Dates: start: 20190611, end: 20200211

REACTIONS (18)
  - Cellulitis [Recovered/Resolved]
  - Fatigue [Not Recovered/Not Resolved]
  - Weight increased [Recovered/Resolved]
  - Feeling hot [Unknown]
  - Vomiting [Unknown]
  - Cellulitis [Recovered/Resolved]
  - Hyperglycaemia [Not Recovered/Not Resolved]
  - Erythema [Recovered/Resolved]
  - Acne [Recovering/Resolving]
  - Swelling [Unknown]
  - Nausea [Recovering/Resolving]
  - Alopecia [Not Recovered/Not Resolved]
  - Rash papular [Recovering/Resolving]
  - Neutropenia [Not Recovered/Not Resolved]
  - Body temperature increased [Recovering/Resolving]
  - Pyrexia [Unknown]
  - Dysgeusia [Not Recovered/Not Resolved]
  - Ocular hyperaemia [Not Recovered/Not Resolved]

NARRATIVE: CASE EVENT DATE: 20191107
